FAERS Safety Report 12525174 (Version 1)
Quarter: 2016Q3

REPORT INFORMATION
  Report Type: Spontaneous
  Country: US (occurrence: US)
  Receive Date: 20160704
  Receipt Date: 20160704
  Transmission Date: 20161109
  Serious: Yes (Death, Other)
  Sender: FDA-Public Use
  Company Number: US-ACTAVIS-2016-14624

PATIENT
  Age: 32 Year
  Sex: Female

DRUGS (3)
  1. GEMCITABINE (ATLLC) [Suspect]
     Active Substance: GEMCITABINE HYDROCHLORIDE
     Indication: ANGIOSARCOMA
     Dosage: UNK, CYCLICAL
     Route: 065
  2. DOXORUBICIN HYDROCHLORIDE (ACTAVIS INC) [Suspect]
     Active Substance: DOXORUBICIN HYDROCHLORIDE
     Indication: ANGIOSARCOMA
     Dosage: UNK, CYCLICAL
     Route: 065
  3. DOCETAXEL (ACTAVIS) [Suspect]
     Active Substance: DOCETAXEL
     Indication: ANGIOSARCOMA
     Dosage: INTERMITTENT DOSES
     Route: 065

REACTIONS (3)
  - Bone marrow failure [Unknown]
  - Hepatic failure [Fatal]
  - Ascites [Unknown]
